FAERS Safety Report 5630924-9 (Version None)
Quarter: 2008Q1

REPORT INFORMATION
  Report Type: 
  Country: None (occurrence: None)
  Receive Date: 20080214
  Receipt Date: 20080204
  Transmission Date: 20080703
  Serious: Yes (Hospitalization)
  Sender: FDA-Public Use
  Company Number: 231138J08USA

PATIENT
  Age: 38 Year
  Sex: Female
  Weight: 81.6475 kg

DRUGS (2)
  1. REBIF [Suspect]
     Indication: MULTIPLE SCLEROSIS
     Dosage: 44 MCG, 3 IN 1 WEEKS, SUBCUTANEOUS
     Route: 058
     Dates: start: 20040325
  2. SOLU-MEDROL [Concomitant]

REACTIONS (8)
  - ASTHENIA [None]
  - BLOOD POTASSIUM DECREASED [None]
  - DEHYDRATION [None]
  - DIARRHOEA [None]
  - DIZZINESS [None]
  - NAUSEA [None]
  - VIRAL INFECTION [None]
  - VOMITING [None]
